FAERS Safety Report 7297762-5 (Version None)
Quarter: 2011Q1

REPORT INFORMATION
  Report Type: 
  Country: None (occurrence: None)
  Receive Date: 20110214
  Receipt Date: 20110214
  Transmission Date: 20110831
  Serious: Yes (Other)
  Sender: FDA-Public Use
  Company Number: None

PATIENT
  Age: 49 Year
  Sex: Male
  Weight: 78.0187 kg

DRUGS (1)
  1. SAPHRIS [Suspect]
     Dosage: 1 DOSE 1X PO
     Route: 048
     Dates: start: 20110212, end: 20110213

REACTIONS (2)
  - PHYSICAL ASSAULT [None]
  - SELF-MEDICATION [None]
